FAERS Safety Report 7061365-8 (Version None)
Quarter: 2010Q4

REPORT INFORMATION
  Report Type: 
  Country: None (occurrence: None)
  Receive Date: 20101026
  Receipt Date: 20101022
  Transmission Date: 20110411
  Serious: Yes (Death, Hospitalization)
  Sender: FDA-Public Use
  Company Number: DE-BRISTOL-MYERS SQUIBB COMPANY-15318249

PATIENT
  Age: 72 Year
  Sex: Male
  Weight: 80 kg

DRUGS (4)
  1. CETUXIMAB [Suspect]
     Indication: NON-SMALL CELL LUNG CANCER
     Dosage: 5MG/ML ON DAY 1, 8 AND 15 OF EACH 3 WEEK CYCLE NO. OF INF:2
     Route: 042
     Dates: start: 20100920, end: 20100927
  2. CISPLATIN [Suspect]
     Indication: NON-SMALL CELL LUNG CANCER
     Dosage: ON DAY 1 OF EACH 3 WEEK CYCLE NO. OF INF:1
     Route: 042
     Dates: start: 20100920, end: 20100920
  3. CILENGITIDE [Suspect]
     Indication: NON-SMALL CELL LUNG CANCER
     Dosage: DAY 1,4,8,11,15,18,EACH WEEK CYC NO. OF INF:3
     Route: 042
     Dates: start: 20100920, end: 20100927
  4. GEMCITABINE [Suspect]
     Indication: NON-SMALL CELL LUNG CANCER
     Dosage: ON DAY 1 AND DAY 8 OF EACH 3 WEEK CYCLE NO. OF INF:2
     Route: 042
     Dates: start: 20100920, end: 20100927

REACTIONS (2)
  - GASTROINTESTINAL INFECTION [None]
  - SEPSIS [None]
